FAERS Safety Report 18237220 (Version 1)
Quarter: 2020Q3

REPORT INFORMATION
  Report Type: Spontaneous
  Country: US (occurrence: US)
  Receive Date: 20200907
  Receipt Date: 20200907
  Transmission Date: 20201103
  Serious: Yes (Other)
  Sender: FDA-Public Use
  Company Number: US-ALLERGAN-2033547US

PATIENT
  Sex: Male

DRUGS (8)
  1. TRAZODONE [Concomitant]
     Active Substance: TRAZODONE HYDROCHLORIDE
  2. VITAMIN D NOS [Concomitant]
     Active Substance: VITAMIN D NOS
  3. LEVOCETIRIZINE [Concomitant]
     Active Substance: LEVOCETIRIZINE
  4. AJOVY [Concomitant]
     Active Substance: FREMANEZUMAB-VFRM
  5. OMEPRAZOLE. [Concomitant]
     Active Substance: OMEPRAZOLE
  6. UBRELVY [Suspect]
     Active Substance: UBROGEPANT
     Indication: MIGRAINE WITHOUT AURA
     Dosage: 100 MG, PRN
     Route: 048
  7. FENOFIBRATE. [Concomitant]
     Active Substance: FENOFIBRATE
  8. FERROUS SULFATE. [Concomitant]
     Active Substance: FERROUS SULFATE

REACTIONS (1)
  - Chronic kidney disease [Unknown]
